FAERS Safety Report 12782042 (Version 1)
Quarter: 2016Q3

REPORT INFORMATION
  Report Type: Spontaneous
  Country: DE (occurrence: DE)
  Receive Date: 20160927
  Receipt Date: 20160927
  Transmission Date: 20161109
  Serious: Yes (Hospitalization)
  Sender: FDA-Public Use
  Company Number: DE-ROCHE-1834022

PATIENT
  Age: 37 Year
  Sex: Male

DRUGS (10)
  1. TORSEMIDE. [Concomitant]
     Active Substance: TORSEMIDE
     Route: 065
  2. PALLADON [Concomitant]
     Active Substance: HYDROMORPHONE
     Dosage: REPORTED AS PALLADON NON RETARD
     Route: 065
  3. CLONIDINE. [Concomitant]
     Active Substance: CLONIDINE
     Route: 065
  4. SOFOSBUVIR [Concomitant]
     Active Substance: SOFOSBUVIR
     Indication: ANTIVIRAL TREATMENT
     Route: 065
     Dates: start: 201403, end: 201409
  5. DACLATASVIR. [Concomitant]
     Active Substance: DACLATASVIR
     Indication: ANTIVIRAL TREATMENT
     Route: 065
     Dates: start: 201403, end: 201509
  6. PALLADON [Concomitant]
     Active Substance: HYDROMORPHONE
     Dosage: REPORTED AS PALLADON RETARD
     Route: 065
  7. DIPYRONE [Concomitant]
     Active Substance: DIPYRONE
     Route: 065
  8. TACROLIMUS. [Interacting]
     Active Substance: TACROLIMUS
     Indication: IMMUNOSUPPRESSION
     Route: 065
  9. MYCOPHENOLATE MOFETIL. [Suspect]
     Active Substance: MYCOPHENOLATE MOFETIL
     Indication: IMMUNOSUPPRESSION
     Route: 065
  10. PREDNISOLONE. [Concomitant]
     Active Substance: PREDNISOLONE
     Indication: IMMUNOSUPPRESSION
     Route: 065

REACTIONS (3)
  - Drug interaction [Unknown]
  - Immunosuppressant drug level increased [Recovering/Resolving]
  - Acute kidney injury [Recovering/Resolving]
